FAERS Safety Report 7872546-5 (Version None)
Quarter: 2011Q4

REPORT INFORMATION
  Report Type: 
  Country: None (occurrence: None)
  Receive Date: 20111030
  Receipt Date: 20110428
  Transmission Date: 20120403
  Serious: No
  Sender: FDA-Public Use
  Company Number: US-AMGEN-USASP2011022168

PATIENT
  Age: 57 Year
  Sex: Female

DRUGS (18)
  1. MULTIVITAMIN                       /00097801/ [Concomitant]
  2. PLAQUENIL [Concomitant]
     Dosage: 200 MG, UNK
  3. RECLAST [Concomitant]
  4. CLINORIL [Concomitant]
     Dosage: 200 MG, UNK
  5. CALCIUM +D [Concomitant]
  6. ENBREL [Suspect]
     Indication: PRODUCT USED FOR UNKNOWN INDICATION
     Dosage: 50 MG, QWK
     Route: 058
  7. NEURONTIN [Concomitant]
     Dosage: 100 MG, UNK
  8. ZANAFLEX [Concomitant]
     Dosage: 2 MG, UNK
  9. FISH OIL [Concomitant]
  10. STOOL SOFTENER [Concomitant]
  11. CYMBALTA [Concomitant]
     Dosage: 20 MG, UNK
  12. ATENOLOL [Concomitant]
     Dosage: 25 MG, UNK
  13. FENTANYL-100 [Concomitant]
     Dosage: 12 UNK, UNK
  14. VITAMIN D [Concomitant]
     Dosage: 1000 IU, UNK
  15. LISINOPRIL [Concomitant]
     Dosage: 2.5 MG, UNK
  16. B-COMPLEX                          /00003501/ [Concomitant]
  17. PROTONIX [Concomitant]
     Dosage: 20 MG, UNK
  18. MAGNESIUM [Concomitant]
     Dosage: 300 MG, UNK

REACTIONS (1)
  - INJECTION SITE PAIN [None]
